FAERS Safety Report 4712888-5 (Version None)
Quarter: 2005Q3

REPORT INFORMATION
  Report Type: 
  Country: None (occurrence: None)
  Receive Date: 20050712
  Receipt Date: 20050712
  Transmission Date: 20060218
  Serious: No
  Sender: FDA-Public Use
  Company Number: None

PATIENT
  Age: 64 Year
  Sex: Male
  Weight: 69.9 kg

DRUGS (18)
  1. METHYLDOPA [Suspect]
     Indication: HYPERTENSION
     Dosage: 500 MG   TWICE DAILY   ORAL
     Route: 048
     Dates: start: 20050612, end: 20050624
  2. ASPIRIN [Concomitant]
  3. OSCAL [Concomitant]
  4. CYCLOSPORINE [Concomitant]
  5. ARANESP [Concomitant]
  6. CARDIZEM CD [Concomitant]
  7. DRONABINOL [Concomitant]
  8. HYDRALAZINE [Concomitant]
  9. LANTUS [Concomitant]
  10. ALBEE WITH C [Concomitant]
  11. REGLAN [Concomitant]
  12. COZAAR [Concomitant]
  13. TOPROL-XL [Concomitant]
  14. ZEMPLAR [Concomitant]
  15. PROTONIX [Concomitant]
  16. RENAGEL [Concomitant]
  17. SENNA [Concomitant]
  18. EFFEXOR XR [Concomitant]

REACTIONS (2)
  - CONFUSIONAL STATE [None]
  - DYSARTHRIA [None]
